FAERS Safety Report 7351898 (Version 4)
Quarter: 2013Q4

REPORT INFORMATION
  Report Type: Spontaneous
  Country: US (occurrence: US)
  Receive Date: 20100412
  Receipt Date: 20131231
  Transmission Date: 20140711
  Serious: Yes (Hospitalization, Other)
  Sender: FDA-Public Use
  Company Number: US-BAYER-201018765NA

PATIENT
  Age: 25 Year
  Sex: Female
  Weight: 50 kg

DRUGS (13)
  1. YAZ [Suspect]
     Dosage: UNK UNK, UNK
     Route: 048
     Dates: start: 2007, end: 2008
  2. IMITREX [Concomitant]
     Dosage: UNK
     Dates: start: 200503
  3. MIGRANAL [Concomitant]
  4. ADVIL [Concomitant]
  5. EFFEXOR [Concomitant]
     Dosage: UNK
     Dates: start: 200801
  6. LORATAB [Concomitant]
     Dosage: UNK
     Dates: start: 200801
  7. ZANTAC [Concomitant]
     Dosage: UNK
     Dates: start: 200801
  8. SUBLIMAZE [Concomitant]
     Dosage: UNK
     Dates: start: 200801
  9. VICODIN [Concomitant]
     Dosage: UNK
     Route: 048
     Dates: start: 200711
  10. LITHIUM CARBONATE [Concomitant]
     Dosage: UNK
     Dates: start: 200702
  11. PROZAC [Concomitant]
     Dosage: UNK
     Dates: start: 200702
  12. LAMICTAL [Concomitant]
     Dosage: UNK
     Dates: start: 200503
  13. TRAZODONE [Concomitant]
     Dosage: UNK
     Dates: start: 200503

REACTIONS (2)
  - Gallbladder injury [None]
  - Cholecystitis chronic [None]
